FAERS Safety Report 4895321-2 (Version None)
Quarter: 2006Q1

REPORT INFORMATION
  Report Type: 
  Country: None (occurrence: None)
  Receive Date: 20060130
  Receipt Date: 20050627
  Transmission Date: 20060701
  Serious: Yes (Hospitalization)
  Sender: FDA-Public Use
  Company Number: US-MERCK-0506USA03779

PATIENT
  Age: 64 Year
  Sex: Male
  Weight: 84 kg

DRUGS (12)
  1. VIOXX [Suspect]
     Indication: ARTHRALGIA
     Route: 048
     Dates: start: 19990902, end: 20040901
  2. PROCARDIA [Concomitant]
     Route: 065
  3. ZANTAC [Concomitant]
     Route: 065
  4. INDOCIN [Concomitant]
     Indication: ARTHRITIS
     Route: 065
  5. VALIUM [Concomitant]
     Route: 065
  6. VICODIN [Concomitant]
     Indication: MIGRAINE
     Route: 065
  7. HYTRIN [Concomitant]
     Indication: BLOOD PRESSURE
     Route: 065
  8. PROPULSID [Concomitant]
     Route: 065
  9. METOPROLOL TARTRATE [Concomitant]
     Route: 065
  10. PRILOSEC [Concomitant]
     Route: 065
  11. ZOCOR [Concomitant]
     Route: 065
  12. ATIVAN [Concomitant]
     Route: 065

REACTIONS (14)
  - ANGINA PECTORIS [None]
  - ARTERIOSCLEROSIS CORONARY ARTERY [None]
  - CHEST PAIN [None]
  - DYSPNOEA [None]
  - FLANK PAIN [None]
  - MYOCARDIAL INFARCTION [None]
  - MYOCARDIAL ISCHAEMIA [None]
  - NAUSEA [None]
  - NEPHROLITHIASIS [None]
  - NON-CARDIAC CHEST PAIN [None]
  - PAIN IN EXTREMITY [None]
  - TACHYCARDIA [None]
  - ULCER [None]
  - VASCULAR GRAFT OCCLUSION [None]
